FAERS Safety Report 21788539 (Version 1)
Quarter: 2022Q4

REPORT INFORMATION
  Report Type: Spontaneous
  Country: FR (occurrence: FR)
  Receive Date: 20221228
  Receipt Date: 20221228
  Transmission Date: 20230113
  Serious: Yes (Other)
  Sender: FDA-Public Use
  Company Number: FR-EMA-DD-20221208-116353-123143

PATIENT
  Age: 52 Year
  Sex: Female
  Weight: 100 kg

DRUGS (12)
  1. FENTANYL CITRATE [Suspect]
     Active Substance: FENTANYL CITRATE
     Indication: Sedation
     Dosage: UNK
     Dates: start: 20210822, end: 20210828
  2. ENOXAPARIN SODIUM [Suspect]
     Active Substance: ENOXAPARIN SODIUM
     Indication: Thrombosis prophylaxis
     Dosage: 1 DOSAGE FORMS DAILY;
     Dates: start: 20210821, end: 20210830
  3. NIMESULIDE [Suspect]
     Active Substance: NIMESULIDE
     Indication: Neuromuscular blocking therapy
     Dosage: UNK
     Dates: start: 20210822, end: 20210824
  4. MIDAZOLAM [Suspect]
     Active Substance: MIDAZOLAM
     Indication: Sedation
     Dosage: UNK
     Dates: start: 20210822, end: 20210825
  5. ROCURONIUM BROMIDE [Suspect]
     Active Substance: ROCURONIUM BROMIDE
     Indication: Neuromuscular blocking therapy
     Dates: start: 20210822, end: 20210824
  6. TOCILIZUMAB [Suspect]
     Active Substance: TOCILIZUMAB
     Indication: COVID-19
     Dates: start: 20210821, end: 20210821
  7. LOVENOX [Suspect]
     Active Substance: ENOXAPARIN SODIUM
     Indication: Thrombosis prophylaxis
     Dosage: LOVENOX 8000 ANTI-XA IU/0.8 ML,
     Route: 058
     Dates: start: 20210821, end: 20210830
  8. KETAMINE [Suspect]
     Active Substance: KETAMINE
     Indication: Sedation
     Dates: start: 20210822, end: 20210824
  9. DEXAMETHASONE [Suspect]
     Active Substance: DEXAMETHASONE
     Indication: COVID-19
     Dates: start: 20210821, end: 20210830
  10. NIMESULIDE [Suspect]
     Active Substance: NIMESULIDE
     Indication: Neuromuscular blocking therapy
     Dates: start: 20210822, end: 20210824
  11. ACUPAN [Concomitant]
     Active Substance: NEFOPAM HYDROCHLORIDE
     Indication: Product used for unknown indication
     Dates: start: 20210820, end: 20210821
  12. AMOXICILLIN\CLAVULANIC ACID [Concomitant]
     Active Substance: AMOXICILLIN\CLAVULANIC ACID
     Indication: Product used for unknown indication
     Dates: start: 20210820, end: 20210820

REACTIONS (2)
  - Hepatocellular injury [Recovering/Resolving]
  - Gamma-glutamyltransferase increased [Recovering/Resolving]

NARRATIVE: CASE EVENT DATE: 20210101
